FAERS Safety Report 6411848-6 (Version None)
Quarter: 2009Q4

REPORT INFORMATION
  Report Type: 
  Country: None (occurrence: None)
  Receive Date: 20091020
  Receipt Date: 20060814
  Transmission Date: 20100525
  Serious: Yes (Hospitalization)
  Sender: FDA-Public Use
  Company Number: 2009009235

PATIENT
  Age: 48 Year
  Sex: Female
  Weight: 63.5036 kg

DRUGS (4)
  1. ACTIQ [Suspect]
     Indication: CLUSTER HEADACHE
     Dosage: 7200 MCG (1200 MCG, 1 IN 1 4 HR), BU
     Route: 002
     Dates: start: 19990101
  2. ACTIQ [Suspect]
     Indication: PANCREATITIS
     Dosage: 7200 MCG (1200 MCG, 1 IN 1 4 HR), BU
     Route: 002
     Dates: start: 19990101
  3. DILAUDID [Concomitant]
  4. ZOFRAN [Concomitant]

REACTIONS (6)
  - CLUSTER HEADACHE [None]
  - CONTRAINDICATION TO MEDICAL TREATMENT [None]
  - DRUG PRESCRIBING ERROR [None]
  - MEDICATION ERROR [None]
  - PANCREATITIS RELAPSING [None]
  - TREATMENT NONCOMPLIANCE [None]
